FAERS Safety Report 19251928 (Version 1)
Quarter: 2021Q2

REPORT INFORMATION
  Report Type: Spontaneous
  Country: US (occurrence: US)
  Receive Date: 20210512
  Receipt Date: 20210512
  Transmission Date: 20210717
  Serious: Yes (Other)
  Sender: FDA-Public Use
  Company Number: None

PATIENT
  Age: 57 Year
  Sex: Female
  Weight: 98.1 kg

DRUGS (21)
  1. PROMETRIUM [Concomitant]
     Active Substance: PROGESTERONE
  2. BUDESONIDE. [Concomitant]
     Active Substance: BUDESONIDE
  3. UBRELVY [Concomitant]
     Active Substance: UBROGEPANT
  4. PEPCID [Concomitant]
     Active Substance: FAMOTIDINE
  5. DICLOFENAC [Concomitant]
     Active Substance: DICLOFENAC
  6. PREMARIN [Concomitant]
     Active Substance: ESTROGENS, CONJUGATED
  7. DIVALPROEX ER [Concomitant]
     Active Substance: DIVALPROEX SODIUM
  8. BUPROPION. [Concomitant]
     Active Substance: BUPROPION
  9. BENADRYL [Concomitant]
     Active Substance: DIPHENHYDRAMINE HYDROCHLORIDE
  10. PROBIOTIC [Concomitant]
     Active Substance: PROBIOTICS NOS
  11. LAMOTRIGENE [Concomitant]
     Active Substance: LAMOTRIGINE
  12. CLONAZEPAM. [Concomitant]
     Active Substance: CLONAZEPAM
  13. ALBUTERAL [Concomitant]
     Active Substance: ALBUTEROL
  14. DICLOFENAC [Concomitant]
     Active Substance: DICLOFENAC
  15. EMGALITY [Suspect]
     Active Substance: GALCANEZUMAB-GNLM
     Indication: MIGRAINE PROPHYLAXIS
     Dosage: ?          QUANTITY:1 INJECTION(S);OTHER FREQUENCY:MONTHLY;?
     Route: 058
     Dates: start: 20210408, end: 20210508
  16. DESVENLAVAXINE [Concomitant]
  17. MUCINEX [Concomitant]
     Active Substance: GUAIFENESIN
  18. MAGNESIUM CITRATE. [Concomitant]
     Active Substance: MAGNESIUM CITRATE
  19. EPINEPHRINE. [Concomitant]
     Active Substance: EPINEPHRINE
  20. PREDNISONE. [Concomitant]
     Active Substance: PREDNISONE
  21. QUETIAPINE. [Concomitant]
     Active Substance: QUETIAPINE

REACTIONS (1)
  - Hypersensitivity [None]

NARRATIVE: CASE EVENT DATE: 20210511
